FAERS Safety Report 12288077 (Version 1)
Quarter: 2016Q2

REPORT INFORMATION
  Report Type: Spontaneous
  Country: US (occurrence: US)
  Receive Date: 20160420
  Receipt Date: 20160420
  Transmission Date: 20160815
  Serious: Yes (Other)
  Sender: FDA-Public Use
  Company Number: US-MDT-ADR-2016-00720

PATIENT
  Age: 33 Year
  Sex: Male

DRUGS (3)
  1. BACLOFEN. [Suspect]
     Active Substance: BACLOFEN
     Route: 037
  2. BACLOFEN. [Suspect]
     Active Substance: BACLOFEN
     Dosage: ^200^
     Route: 037
  3. BACLOFEN. [Suspect]
     Active Substance: BACLOFEN
     Dosage: ^280.4^
     Route: 037

REACTIONS (8)
  - Unresponsive to stimuli [Recovered/Resolved]
  - Procedural complication [None]
  - Seizure [Recovered/Resolved]
  - Respiratory rate decreased [Recovered/Resolved]
  - Overdose [Recovered/Resolved]
  - Oropharyngeal pain [None]
  - Generalised tonic-clonic seizure [Recovered/Resolved]
  - Nystagmus [Recovered/Resolved]

NARRATIVE: CASE EVENT DATE: 20100422
